FAERS Safety Report 16946157 (Version 3)
Quarter: 2019Q4

REPORT INFORMATION
  Report Type: Spontaneous
  Country: US (occurrence: US)
  Receive Date: 20191022
  Receipt Date: 20191125
  Transmission Date: 20200122
  Serious: No
  Sender: FDA-Public Use
  Company Number: US-PFIZER INC-2019434825

PATIENT
  Age: 68 Year
  Sex: Female

DRUGS (2)
  1. ESTRING [Suspect]
     Active Substance: ESTRADIOL
     Dosage: 0.5 MG (0.05 MG/24 HR, 1 RING EVERY 3 MONTHS)
  2. ESTRING [Suspect]
     Active Substance: ESTRADIOL
     Dosage: 0.5 MG (1 RING EVERY 3 MONTHS)

REACTIONS (1)
  - Product prescribing error [Unknown]
